FAERS Safety Report 4673214-3 (Version None)
Quarter: 2005Q2

REPORT INFORMATION
  Report Type: 
  Country: None (occurrence: None)
  Receive Date: 20050523
  Receipt Date: 20050523
  Transmission Date: 20051028
  Serious: Yes (Other)
  Sender: FDA-Public Use
  Company Number: None

PATIENT
  Age: 62 Year
  Sex: Male
  Weight: 74.4 kg

DRUGS (14)
  1. MORPHINE [Suspect]
  2. GABAPENTIN [Concomitant]
  3. HYPROMELLOSE [Concomitant]
  4. MODAFINIL [Concomitant]
  5. PREDNISOLON AC 0.2/SULFACET [Concomitant]
  6. MORPHINE [Concomitant]
  7. RANITIDINE HCL [Concomitant]
  8. HYDROCODONE 5/ACETAMINOPHEN [Concomitant]
  9. LISINOPRIL [Concomitant]
  10. HYPROMELLOSE [Concomitant]
  11. SENNOSIDES [Concomitant]
  12. BACLOFEN [Concomitant]
  13. OFLOXACIN [Concomitant]
  14. CARBIDOPA 25/LEVODOPA [Concomitant]

REACTIONS (2)
  - ANXIETY [None]
  - INSOMNIA [None]
